FAERS Safety Report 17482524 (Version 2)
Quarter: 2020Q1

REPORT INFORMATION
  Report Type: Spontaneous
  Country: US (occurrence: US)
  Receive Date: 20200302
  Receipt Date: 20200306
  Transmission Date: 20200409
  Serious: Yes (Other)
  Sender: FDA-Public Use
  Company Number: US-PFIZER INC-2020088070

PATIENT
  Age: 65 Year
  Sex: Female
  Weight: 59.1 kg

DRUGS (15)
  1. CALCIUM FOLINATE [Suspect]
     Active Substance: LEUCOVORIN CALCIUM
     Dosage: UNK
     Dates: start: 20170918, end: 201712
  2. IRINOTECAN HCL [Suspect]
     Active Substance: IRINOTECAN HYDROCHLORIDE
     Dosage: UNK (HOLD FOR REACTIONS)
     Dates: end: 20190606
  3. FLUOROURACIL. [Suspect]
     Active Substance: FLUOROURACIL
     Dosage: UNK (FOLFIRINOX SUSPENDED)
     Dates: start: 20170918, end: 20180817
  4. IRINOTECAN HCL [Suspect]
     Active Substance: IRINOTECAN HYDROCHLORIDE
     Dosage: UNK
     Dates: end: 20190912
  5. OXALIPLATIN. [Suspect]
     Active Substance: OXALIPLATIN
     Dosage: UNK (DOSE REDUCED)
     Dates: start: 201803
  6. OXALIPLATIN. [Suspect]
     Active Substance: OXALIPLATIN
     Dosage: UNK (FOLFIRINOX SUSPENDED)
     Dates: end: 20180817
  7. OXALIPLATIN. [Suspect]
     Active Substance: OXALIPLATIN
     Dosage: UNK (FOLFIRINOX RECHALLENGE; DOSE REDUCED BY 20%)
     Dates: start: 20190321
  8. CALCIUM FOLINATE [Suspect]
     Active Substance: LEUCOVORIN CALCIUM
     Dosage: UNK (FOLFIRINOX SUSPENDED)
     Dates: end: 20180817
  9. CALCIUM FOLINATE [Suspect]
     Active Substance: LEUCOVORIN CALCIUM
     Dosage: UNK (FOLFIRINOX RECHALLENGE)
     Dates: start: 20190321
  10. FLUOROURACIL. [Suspect]
     Active Substance: FLUOROURACIL
     Dosage: UNK (DOSE REDUCED FOLFOX ONLY)
  11. IRINOTECAN HCL [Suspect]
     Active Substance: IRINOTECAN HYDROCHLORIDE
     Dosage: UNK (FOLFIRINOX SUSPENDED)
     Dates: start: 20170918, end: 20180817
  12. IRINOTECAN HCL [Suspect]
     Active Substance: IRINOTECAN HYDROCHLORIDE
     Dosage: UNK (FOLFIRINOX RECHALLENGE)
     Dates: start: 20190321
  13. CALCIUM FOLINATE [Suspect]
     Active Substance: LEUCOVORIN CALCIUM
     Dosage: UNK (DOSE REDUCED FOLFOX ONLY)
     Dates: end: 20190912
  14. FLUOROURACIL. [Suspect]
     Active Substance: FLUOROURACIL
     Dosage: UNK (FOLFIRINOX RECHALLENGE)
     Dates: start: 20190321
  15. OXALIPLATIN. [Suspect]
     Active Substance: OXALIPLATIN
     Dosage: UNK (DISCONTINUED)
     Dates: start: 20170918, end: 201712

REACTIONS (2)
  - Neuropathy peripheral [Not Recovered/Not Resolved]
  - Neoplasm progression [Unknown]

NARRATIVE: CASE EVENT DATE: 201803
